FAERS Safety Report 19358156 (Version 2)
Quarter: 2021Q2

REPORT INFORMATION
  Report Type: Spontaneous
  Country: US (occurrence: US)
  Receive Date: 20210531
  Receipt Date: 20210623
  Transmission Date: 20210717
  Serious: Yes (Other)
  Sender: FDA-Public Use
  Company Number: US-009507513-2105USA006727

PATIENT
  Age: 50 Year
  Sex: Male

DRUGS (2)
  1. KEYTRUDA [Suspect]
     Active Substance: PEMBROLIZUMAB
     Indication: HEAD AND NECK CANCER
     Dosage: UNK, EVERY 6 WEEKS
     Route: 042
     Dates: start: 202103
  2. CISPLATIN. [Suspect]
     Active Substance: CISPLATIN
     Dosage: 150 MG EVERY 3 WEEKS

REACTIONS (22)
  - Somnolence [Not Recovered/Not Resolved]
  - Skin fissures [Not Recovered/Not Resolved]
  - Wheelchair user [Not Recovered/Not Resolved]
  - Malignant dysphagia [Not Recovered/Not Resolved]
  - Poor quality sleep [Not Recovered/Not Resolved]
  - Arthralgia [Not Recovered/Not Resolved]
  - Thyroid disorder [Not Recovered/Not Resolved]
  - Burning sensation [Not Recovered/Not Resolved]
  - Pain in jaw [Not Recovered/Not Resolved]
  - Candida infection [Not Recovered/Not Resolved]
  - Asthenia [Not Recovered/Not Resolved]
  - Cognitive disorder [Not Recovered/Not Resolved]
  - Chest pain [Not Recovered/Not Resolved]
  - Peripheral swelling [Not Recovered/Not Resolved]
  - Balance disorder [Not Recovered/Not Resolved]
  - Walking aid user [Not Recovered/Not Resolved]
  - Neuropathy peripheral [Not Recovered/Not Resolved]
  - Hand-eye coordination impaired [Not Recovered/Not Resolved]
  - Diarrhoea [Not Recovered/Not Resolved]
  - Pain in extremity [Not Recovered/Not Resolved]
  - Dry mouth [Not Recovered/Not Resolved]
  - Oral pain [Not Recovered/Not Resolved]

NARRATIVE: CASE EVENT DATE: 2021
